FAERS Safety Report 20364811 (Version 5)
Quarter: 2022Q2

REPORT INFORMATION
  Report Type: Report from Study
  Country: US (occurrence: US)
  Receive Date: 20220122
  Receipt Date: 20220517
  Transmission Date: 20220720
  Serious: Yes (Other)
  Sender: FDA-Public Use
  Company Number: US-NOVARTISPH-NVSC2022US007486

PATIENT
  Age: 58 Year
  Sex: Male

DRUGS (8)
  1. ENTRESTO [Suspect]
     Active Substance: SACUBITRIL\VALSARTAN
     Indication: Cardiac failure
     Dosage: 1 DOSAGE FORM, BID (24/26 MG)
     Route: 048
     Dates: start: 20210111
  2. ENTRESTO [Suspect]
     Active Substance: SACUBITRIL\VALSARTAN
     Dosage: 1 DOSAGE FORM, BID (24/26 MG)
     Route: 048
     Dates: start: 202201
  3. AMIODARONE [Suspect]
     Active Substance: AMIODARONE
     Indication: Atrial fibrillation
     Dosage: 400 MG, BID (UNTILL 22 JAN 2022, THEN 200MG DAILY)
     Route: 048
     Dates: start: 20220111
  4. CARVEDILOL [Suspect]
     Active Substance: CARVEDILOL
     Indication: Cardiac failure
     Dosage: 12.5 MG, BID
     Route: 048
  5. CARVEDILOL [Suspect]
     Active Substance: CARVEDILOL
     Indication: Hypertension
  6. HYDROCHLOROTHIAZIDE [Suspect]
     Active Substance: HYDROCHLOROTHIAZIDE
     Indication: Product used for unknown indication
     Dosage: 12.5 MG, BID
     Route: 048
  7. HYDROCHLOROTHIAZIDE [Suspect]
     Active Substance: HYDROCHLOROTHIAZIDE
     Indication: Hypertension
  8. ELIQUIS [Suspect]
     Active Substance: APIXABAN
     Indication: Atrial fibrillation
     Dosage: 5 MG, BID
     Route: 065

REACTIONS (11)
  - Arrhythmia [Unknown]
  - Cardiac failure [Unknown]
  - Throat clearing [Unknown]
  - Pollakiuria [Unknown]
  - Poor quality sleep [Unknown]
  - Blood glucose decreased [Unknown]
  - Cough [Unknown]
  - Fatigue [Unknown]
  - Blood potassium increased [Unknown]
  - Dyspnoea [Recovered/Resolved]
  - Thinking abnormal [Recovered/Resolved]

NARRATIVE: CASE EVENT DATE: 20220104
